FAERS Safety Report 20069515 (Version 1)
Quarter: 2021Q4

REPORT INFORMATION
  Report Type: Spontaneous
  Country: US (occurrence: None)
  Receive Date: 20211113
  Receipt Date: 20211113
  Transmission Date: 20220303
  Serious: Yes (Life-Threatening, Hospitalization, Other)
  Sender: FDA-Public Use
  Company Number: None

PATIENT
  Age: 83 Year
  Sex: Male
  Weight: 85.5 kg

DRUGS (1)
  1. ERBITUX [Suspect]
     Active Substance: CETUXIMAB
     Dosage: OTHER FREQUENCY : ONE TIME PER WEEK;?
     Route: 042

REACTIONS (3)
  - Terminal state [None]
  - Contraindicated product administered [None]
  - Contraindicated product prescribed [None]
